FAERS Safety Report 8377875-7 (Version None)
Quarter: 2012Q2

REPORT INFORMATION
  Report Type: 
  Country: None (occurrence: None)
  Receive Date: 20120522
  Receipt Date: 20120517
  Transmission Date: 20120825
  Serious: Yes (Hospitalization)
  Sender: FDA-Public Use
  Company Number: US-PFIZER INC-2012120750

PATIENT
  Sex: Male
  Weight: 9.977 kg

DRUGS (1)
  1. BENEFIX [Suspect]
     Indication: FACTOR IX DEFICIENCY
     Dosage: UNK
     Route: 042
     Dates: start: 20110501

REACTIONS (4)
  - HAEMORRHAGE [None]
  - VOMITING [None]
  - FALL [None]
  - MALAISE [None]
